FAERS Safety Report 6664261-0 (Version None)
Quarter: 2010Q2

REPORT INFORMATION
  Report Type: 
  Country: None (occurrence: None)
  Receive Date: 20100401
  Receipt Date: 20100323
  Transmission Date: 20101027
  Serious: Yes (Hospitalization, Other)
  Sender: FDA-Public Use
  Company Number: PHEH2010US03239

PATIENT
  Sex: Female

DRUGS (7)
  1. EXJADE [Suspect]
     Indication: IRON OVERLOAD
     Dosage: 1500 MG DAILY
     Route: 048
     Dates: start: 20081001
  2. HYDROCODONE [Concomitant]
     Dosage: 7.5 MG, BID
  3. TOPAMAX [Concomitant]
     Dosage: 200 MG, BID
  4. DEPAKOTE [Concomitant]
  5. ELAVIL [Concomitant]
  6. TRICYCLIC ANTIDEPRESSANTS [Concomitant]
  7. NORPLANT [Concomitant]

REACTIONS (8)
  - FEELING ABNORMAL [None]
  - GLAUCOMA [None]
  - HAEMOLYTIC ANAEMIA [None]
  - JAUNDICE [None]
  - LETHARGY [None]
  - PAIN [None]
  - SEDATION [None]
  - SICKLE CELL ANAEMIA WITH CRISIS [None]
